FAERS Safety Report 5377477-0 (Version None)
Quarter: 2007Q3

REPORT INFORMATION
  Report Type: 
  Country: None (occurrence: None)
  Receive Date: 20070703
  Receipt Date: 20070621
  Transmission Date: 20080115
  Serious: Yes (Hospitalization)
  Sender: FDA-Public Use
  Company Number: CZ-ROCHE-451247

PATIENT
  Age: 20 Year
  Sex: Female
  Weight: 63 kg

DRUGS (4)
  1. PEG-INTERFERON A-2A (RO 25-8310) [Suspect]
     Dosage: DOSAGE FORM ALSO REPORTED AS VIAL/PRE-FILLED SYRINGE
     Route: 058
     Dates: start: 20051210, end: 20060608
  2. RIBAVIRIN [Suspect]
     Route: 048
     Dates: start: 20051210, end: 20060228
  3. RIBAVIRIN [Suspect]
     Route: 048
     Dates: start: 20060301, end: 20060406
  4. RIBAVIRIN [Suspect]
     Route: 048
     Dates: start: 20060407, end: 20060524

REACTIONS (1)
  - ANAEMIA HAEMOLYTIC AUTOIMMUNE [None]
